FAERS Safety Report 15092815 (Version 1)
Quarter: 2018Q2

REPORT INFORMATION
  Report Type: Spontaneous
  Country: IT (occurrence: IT)
  Receive Date: 20180629
  Receipt Date: 20180629
  Transmission Date: 20180711
  Serious: Yes (Other)
  Sender: FDA-Public Use
  Company Number: IT-ASTRAZENECA-2018SE83021

PATIENT
  Sex: Female

DRUGS (1)
  1. OLAPARIB. [Suspect]
     Active Substance: OLAPARIB
     Route: 048
     Dates: start: 201707

REACTIONS (6)
  - Malignant neoplasm progression [Unknown]
  - Somnolence [Unknown]
  - Swelling [Unknown]
  - Muscle spasms [Unknown]
  - Decreased appetite [Unknown]
  - Asthenia [Unknown]
